FAERS Safety Report 10178370 (Version 1)
Quarter: 2014Q2

REPORT INFORMATION
  Report Type: Spontaneous
  Country: US (occurrence: None)
  Receive Date: 20140516
  Receipt Date: 20140516
  Transmission Date: 20141212
  Serious: No
  Sender: FDA-Public Use
  Company Number: None

PATIENT
  Age: 50 Year
  Sex: Male

DRUGS (1)
  1. NEXAVER 200MG BAYER [Suspect]
     Route: 048
     Dates: start: 20140421

REACTIONS (2)
  - Vomiting [None]
  - Nausea [None]
